FAERS Safety Report 4376288-2 (Version None)
Quarter: 2004Q2

REPORT INFORMATION
  Report Type: 
  Country: None (occurrence: None)
  Receive Date: 20040608
  Receipt Date: 20031125
  Transmission Date: 20050107
  Serious: Yes (Other)
  Sender: FDA-Public Use
  Company Number: 200314426BCC

PATIENT
  Age: 51 Year
  Sex: Male
  Weight: 181.4388 kg

DRUGS (3)
  1. ALEVE [Suspect]
     Indication: ARTHRALGIA
     Dosage: 880 MG, QD, ORAL; 880 MG, QD, ORAL; 440 MG, QD, ORAL
     Route: 048
     Dates: start: 20031123
  2. ALEVE [Suspect]
     Indication: ARTHRALGIA
     Dosage: 880 MG, QD, ORAL; 880 MG, QD, ORAL; 440 MG, QD, ORAL
     Route: 048
     Dates: start: 20031124
  3. ALEVE [Suspect]
     Indication: ARTHRALGIA
     Dosage: 880 MG, QD, ORAL; 880 MG, QD, ORAL; 440 MG, QD, ORAL
     Route: 048
     Dates: start: 20031125

REACTIONS (1)
  - HAEMATOCHEZIA [None]
